FAERS Safety Report 10966179 (Version 1)
Quarter: 2015Q1

REPORT INFORMATION
  Report Type: Spontaneous
  Country: US (occurrence: US)
  Receive Date: 20150330
  Receipt Date: 20150330
  Transmission Date: 20150721
  Serious: No
  Sender: FDA-Public Use
  Company Number: US-MYLANLABS-2014S1006404

PATIENT
  Sex: Male
  Weight: 79.38 kg

DRUGS (6)
  1. ZOLPIDEM TARTRATE TABLETS [Suspect]
     Active Substance: ZOLPIDEM TARTRATE
     Indication: INSOMNIA
     Dosage: 10 MG,HS
     Route: 048
     Dates: start: 2009
  2. MULTIVITAMIN [Concomitant]
     Active Substance: VITAMINS
     Dosage: UNK UNK,QD
  3. FENTANYL TRANSDERMAL SYSTEM [Suspect]
     Active Substance: FENTANYL
     Indication: BACK PAIN
     Dosage: 25 ?G,QH
     Route: 062
     Dates: start: 2007
  4. CARVEDILOL. [Concomitant]
     Active Substance: CARVEDILOL
     Indication: HYPERTENSION
     Dosage: 6.125 MG,BID
  5. ATIVAN [Concomitant]
     Active Substance: LORAZEPAM
     Indication: ANXIETY
     Dosage: 1 MG,TID
  6. MIRTAZAPINE. [Concomitant]
     Active Substance: MIRTAZAPINE
     Indication: DEPRESSION
     Dosage: 15 MG,HS

REACTIONS (1)
  - Hunger [Not Recovered/Not Resolved]

NARRATIVE: CASE EVENT DATE: 2012
